FAERS Safety Report 17358471 (Version 1)
Quarter: 2020Q1

REPORT INFORMATION
  Report Type: Spontaneous
  Country: US (occurrence: US)
  Receive Date: 20200201
  Receipt Date: 20200201
  Transmission Date: 20200409
  Serious: No
  Sender: FDA-Public Use
  Company Number: US-BAYER-2020-015046

PATIENT
  Sex: Female

DRUGS (2)
  1. CLARITIN [Suspect]
     Active Substance: LORATADINE
     Indication: NASAL CONGESTION
     Dosage: UNK
     Route: 048
  2. AFRIN ORIGINAL [Suspect]
     Active Substance: OXYMETAZOLINE HYDROCHLORIDE
     Indication: NASAL CONGESTION
     Dosage: UNK UNK, BID
     Route: 055
     Dates: start: 2010

REACTIONS (4)
  - Incorrect product administration duration [Unknown]
  - Hypertension [Unknown]
  - Off label use [Unknown]
  - Drug ineffective for unapproved indication [Unknown]
